FAERS Safety Report 6438422-X (Version None)
Quarter: 2009Q4

REPORT INFORMATION
  Report Type: 
  Country: None (occurrence: None)
  Receive Date: 20091112
  Receipt Date: 20091102
  Transmission Date: 20100525
  Serious: Yes (Other)
  Sender: FDA-Public Use
  Company Number: US-ABBOTT-09P-163-0606728-00

PATIENT
  Sex: Male

DRUGS (2)
  1. SIMCOR [Suspect]
     Indication: DRUG USE FOR UNKNOWN INDICATION
     Dates: start: 20091024, end: 20091026
  2. BENICAR [Suspect]
     Indication: DRUG USE FOR UNKNOWN INDICATION
     Dates: start: 20091019, end: 20091026

REACTIONS (9)
  - BLOOD CREATININE INCREASED [None]
  - BLOOD POTASSIUM INCREASED [None]
  - BLOOD PRESSURE ABNORMAL [None]
  - DIZZINESS [None]
  - HEART RATE DECREASED [None]
  - MUSCLE FATIGUE [None]
  - MUSCLE SPASMS [None]
  - MUSCULAR WEAKNESS [None]
  - URINE COLOUR ABNORMAL [None]
